FAERS Safety Report 6484334-5 (Version None)
Quarter: 2009Q4

REPORT INFORMATION
  Report Type: 
  Country: None (occurrence: None)
  Receive Date: 20091209
  Receipt Date: 20090528
  Transmission Date: 20100525
  Serious: No
  Sender: FDA-Public Use
  Company Number: US-AMGEN-KDL348994

PATIENT
  Sex: Male

DRUGS (2)
  1. ENBREL [Suspect]
     Indication: ANKYLOSING SPONDYLITIS
     Route: 058
     Dates: start: 20080330
  2. SULFASALAZINE [Concomitant]
     Route: 048
     Dates: start: 20070101

REACTIONS (3)
  - ANKYLOSING SPONDYLITIS [None]
  - INJECTION SITE PAIN [None]
  - INJECTION SITE SWELLING [None]
